FAERS Safety Report 8831015 (Version 1)
Quarter: 2012Q4

REPORT INFORMATION
  Report Type: 
  Country: FR (occurrence: FR)
  Receive Date: 20121009
  Receipt Date: 20121009
  Transmission Date: 20130627
  Serious: Yes (Disabling)
  Sender: FDA-Public Use
  Company Number: FR-ASTELLAS-2012EU007051

PATIENT
  Sex: Female

DRUGS (1)
  1. PROGRAF [Suspect]
     Dosage: 8 mg, Unknown/D
     Route: 065

REACTIONS (1)
  - Adverse event [Unknown]
